FAERS Safety Report 19676336 (Version 1)
Quarter: 2021Q3

REPORT INFORMATION
  Report Type: Spontaneous
  Country: ES (occurrence: ES)
  Receive Date: 20210809
  Receipt Date: 20210809
  Transmission Date: 20211014
  Serious: Yes (Other)
  Sender: FDA-Public Use
  Company Number: ES-SUN PHARMACEUTICAL INDUSTRIES LTD-2021R1-307113

PATIENT
  Age: 54 Year
  Sex: Male

DRUGS (6)
  1. DEXAMETHASONE. [Suspect]
     Active Substance: DEXAMETHASONE
     Indication: CHEMOTHERAPY
     Dosage: 40 MILLIGRAM, QD, DAY 1?4 AND DAY 8?11
     Route: 065
     Dates: start: 201607, end: 201611
  2. CYCLOPHOSPHAMIDE. [Suspect]
     Active Substance: CYCLOPHOSPHAMIDE
     Indication: CHEMOTHERAPY
     Dosage: 300 MILLIGRAM/SQ. METER, BID, DAY 1?4
     Route: 065
     Dates: start: 201607, end: 201611
  3. METHOTREXATE. [Suspect]
     Active Substance: METHOTREXATE
     Indication: CHEMOTHERAPY
     Dosage: 1 GRAM PER SQUARE METRE/ ON DAY 1
     Route: 065
     Dates: start: 201607, end: 201611
  4. DOXORUBICIN [Suspect]
     Active Substance: DOXORUBICIN
     Indication: CHEMOTHERAPY
     Dosage: 25 MILLIGRAM/SQ. METER, DAILY/ DAY 4?5
     Route: 065
     Dates: start: 201607, end: 201611
  5. VINCRISTINE [Suspect]
     Active Substance: VINCRISTINE
     Indication: CHEMOTHERAPY
     Dosage: 2 MILLIGRAM ON DAY 4 AND 11
     Route: 065
     Dates: start: 201607, end: 201611
  6. CYTARABINE. [Suspect]
     Active Substance: CYTARABINE
     Indication: CHEMOTHERAPY
     Dosage: 3 GRAM PER SQUARE METRE, BID/ DAY 2?3
     Route: 065
     Dates: start: 201607, end: 201611

REACTIONS (1)
  - Therapy partial responder [Unknown]
